FAERS Safety Report 4448225-3 (Version None)
Quarter: 2004Q3

REPORT INFORMATION
  Report Type: 
  Country: None (occurrence: None)
  Receive Date: 20040813
  Receipt Date: 20040630
  Transmission Date: 20050211
  Serious: Yes (Other)
  Sender: FDA-Public Use
  Company Number: SO4-USA-03832-01

PATIENT
  Sex: Male

DRUGS (2)
  1. NAMENDA [Suspect]
     Indication: DEMENTIA ALZHEIMER'S TYPE
  2. ORAL HYPOGLYCEMICS (NOS) [Concomitant]

REACTIONS (1)
  - BLOOD GLUCOSE INCREASED [None]
